FAERS Safety Report 8570569-4 (Version None)
Quarter: 2012Q3

REPORT INFORMATION
  Report Type: 
  Country: None (occurrence: None)
  Receive Date: 20120804
  Receipt Date: 20120726
  Transmission Date: 20120928
  Serious: Yes (Hospitalization)
  Sender: FDA-Public Use
  Company Number: US-009507513-1207USA011432

PATIENT

DRUGS (2)
  1. VICTRELIS [Suspect]
     Dosage: 200 MG, UNK
     Route: 048
  2. RIBAVIRIN [Suspect]
     Dosage: 600 MG, BID
     Route: 048

REACTIONS (2)
  - ANAEMIA [None]
  - SYNCOPE [None]
